FAERS Safety Report 25064931 (Version 1)
Quarter: 2025Q1

REPORT INFORMATION
  Report Type: Report from Study
  Country: CO (occurrence: CO)
  Receive Date: 20250311
  Receipt Date: 20250311
  Transmission Date: 20250409
  Serious: Yes (Hospitalization)
  Sender: EISAI
  Company Number: CO-Eisai-EC-2025-185644

PATIENT
  Age: 55 Year
  Sex: Female
  Weight: 75 kg

DRUGS (5)
  1. HALAVEN [Suspect]
     Active Substance: ERIBULIN MESYLATE
     Indication: Triple negative breast cancer
     Dates: start: 20240516, end: 202407
  2. HALAVEN [Suspect]
     Active Substance: ERIBULIN MESYLATE
     Dates: start: 20240905, end: 20240912
  3. HALAVEN [Suspect]
     Active Substance: ERIBULIN MESYLATE
     Dates: start: 20241002, end: 20241009
  4. HALAVEN [Suspect]
     Active Substance: ERIBULIN MESYLATE
     Dates: start: 20241106, end: 20241106
  5. HALAVEN [Suspect]
     Active Substance: ERIBULIN MESYLATE
     Dates: start: 20241119

REACTIONS (3)
  - Pain [Not Recovered/Not Resolved]
  - Vomiting [Not Recovered/Not Resolved]
  - Pyrexia [Not Recovered/Not Resolved]

NARRATIVE: CASE EVENT DATE: 20250228
